FAERS Safety Report 7083851-7 (Version None)
Quarter: 2010Q4

REPORT INFORMATION
  Report Type: 
  Country: None (occurrence: None)
  Receive Date: 20101104
  Receipt Date: 20101027
  Transmission Date: 20110411
  Serious: Yes (Other)
  Sender: FDA-Public Use
  Company Number: TR-BAXTER-2010BH026979

PATIENT
  Age: 48 Year
  Sex: Male
  Weight: 66 kg

DRUGS (4)
  1. EXTRANEAL [Suspect]
     Indication: DIALYSIS
     Route: 033
     Dates: start: 20100303, end: 20101013
  2. CARDURA                                 /IRE/ [Concomitant]
     Indication: PRODUCT USED FOR UNKNOWN INDICATION
     Route: 048
  3. EPOETIN BETA [Concomitant]
     Indication: PRODUCT USED FOR UNKNOWN INDICATION
     Route: 042
  4. BEMIKS [Concomitant]
     Indication: PRODUCT USED FOR UNKNOWN INDICATION
     Route: 048

REACTIONS (1)
  - CHEMICAL PERITONITIS [None]
